FAERS Safety Report 8306883-7 (Version None)
Quarter: 2012Q2

REPORT INFORMATION
  Report Type: 
  Country: None (occurrence: None)
  Receive Date: 20120420
  Receipt Date: 20120405
  Transmission Date: 20120825
  Serious: Yes (Disabling, Other)
  Sender: FDA-Public Use
  Company Number: US-1191258

PATIENT
  Age: 65 Year
  Sex: Female
  Weight: 58.0604 kg

DRUGS (3)
  1. BSS [Suspect]
     Indication: INTRAOCULAR LENS IMPLANT
     Dosage: INTRAOCULAR
     Route: 031
     Dates: start: 20120216, end: 20120216
  2. VIGAMOX [Suspect]
     Indication: PREOPERATIVE CARE
     Dosage: OPHTHALMIC
     Route: 047
     Dates: start: 20120101
  3. EPINEPHRINE [Concomitant]

REACTIONS (2)
  - ENDOPHTHALMITIS [None]
  - POST PROCEDURAL COMPLICATION [None]
